FAERS Safety Report 7573402-2 (Version None)
Quarter: 2011Q2

REPORT INFORMATION
  Report Type: 
  Country: None (occurrence: None)
  Receive Date: 20110627
  Receipt Date: 20110329
  Transmission Date: 20111010
  Serious: Yes (Other)
  Sender: FDA-Public Use
  Company Number: A0920430A

PATIENT
  Age: 40 Year
  Sex: Male

DRUGS (3)
  1. LAMICTAL [Suspect]
     Indication: EPILEPSY
     Route: 048
     Dates: start: 20010101
  2. IBUPROFEN [Concomitant]
  3. LAMICTAL XR [Suspect]
     Indication: EPILEPSY
     Dosage: 200MG PER DAY
     Route: 048
     Dates: start: 20100301

REACTIONS (7)
  - DRUG INEFFECTIVE [None]
  - RASH [None]
  - CONVULSION [None]
  - PRURITUS [None]
  - HEADACHE [None]
  - GRAND MAL CONVULSION [None]
  - MEMORY IMPAIRMENT [None]
